FAERS Safety Report 11171233 (Version 1)
Quarter: 2015Q2

REPORT INFORMATION
  Report Type: Spontaneous
  Country: US (occurrence: None)
  Receive Date: 20150605
  Receipt Date: 20150605
  Transmission Date: 20150821
  Serious: Yes (Life-Threatening, Other)
  Sender: FDA-Public Use
  Company Number: None

PATIENT
  Age: 19 Year
  Sex: Male
  Weight: 113.4 kg

DRUGS (2)
  1. MICROBAN / TRICLOSAN [Suspect]
     Active Substance: TRICLOSAN
  2. DIAL ANTIBACTERIAL SOAP (TRICLOSAN) [Suspect]
     Active Substance: TRICLOSAN

REACTIONS (9)
  - Accidental exposure to product [None]
  - Blister [None]
  - Allergy to chemicals [None]
  - Rash [None]
  - Haemorrhage [None]
  - Pruritus [None]
  - Emotional distress [None]
  - Dermatitis allergic [None]
  - Skin exfoliation [None]
